FAERS Safety Report 17162692 (Version 1)
Quarter: 2019Q4

REPORT INFORMATION
  Report Type: Spontaneous
  Country: IT (occurrence: IT)
  Receive Date: 20191217
  Receipt Date: 20191217
  Transmission Date: 20200122
  Serious: Yes (Hospitalization)
  Sender: FDA-Public Use
  Company Number: IT-TEVA-2019-IT-1151937

PATIENT
  Age: 51 Year
  Sex: Male

DRUGS (3)
  1. CISPLATIN. [Suspect]
     Active Substance: CISPLATIN
     Indication: TESTIS CANCER
     Dosage: 20 MG PER 1 CYCLICAL
     Route: 042
     Dates: start: 20190916, end: 20190929
  2. ETOPOSIDE. [Suspect]
     Active Substance: ETOPOSIDE
     Indication: TESTIS CANCER
     Dosage: 100 MG PER 1 CYCLICAL
     Route: 042
     Dates: start: 20190916, end: 20190929
  3. BLEOMYCIN SULFATE [Suspect]
     Active Substance: BLEOMYCIN SULFATE
     Indication: TESTIS CANCER
     Dosage: 30 MG PER 1 CYCLICAL
     Route: 042
     Dates: start: 20190916, end: 20190929

REACTIONS (2)
  - Pyrexia [Unknown]
  - Cytopenia [Unknown]

NARRATIVE: CASE EVENT DATE: 20190930
